FAERS Safety Report 8435273-1 (Version None)
Quarter: 2012Q2

REPORT INFORMATION
  Report Type: 
  Country: None (occurrence: None)
  Receive Date: 20120614
  Receipt Date: 20120531
  Transmission Date: 20120825
  Serious: Yes (Hospitalization)
  Sender: FDA-Public Use
  Company Number: RU-CELGENEUS-251-21880-12022551

PATIENT
  Sex: Male
  Weight: 81 kg

DRUGS (18)
  1. DEXAMETHASONE [Suspect]
     Dosage: 12 MILLIGRAM
     Route: 041
     Dates: start: 20120224, end: 20120307
  2. DEXAMETHASONE [Suspect]
     Route: 065
     Dates: start: 20120430, end: 20120521
  3. ASPIRIN [Suspect]
     Indication: GOUTY ARTHRITIS
     Dosage: 100 MILLIGRAM
     Route: 048
     Dates: start: 20120210, end: 20120220
  4. CEFEPIME [Concomitant]
     Dosage: 2 GRAM
     Route: 041
     Dates: start: 20120319, end: 20120319
  5. REVLIMID [Suspect]
     Indication: MULTIPLE MYELOMA
     Route: 048
     Dates: start: 20111122, end: 20111212
  6. DEXAMETHASONE [Suspect]
     Indication: VASCULITIS
     Route: 065
     Dates: start: 20111220, end: 20120221
  7. LANSOPRAZOLE [Concomitant]
     Dosage: 30 MILLIGRAM
     Route: 048
     Dates: start: 20111122
  8. REVLIMID [Suspect]
     Route: 048
     Dates: start: 20111220, end: 20120223
  9. REVLIMID [Suspect]
     Route: 048
     Dates: start: 20120501, end: 20120520
  10. DEXAMETHASONE [Suspect]
     Indication: MULTIPLE MYELOMA
     Route: 065
     Dates: start: 20111122, end: 20111213
  11. CEFEPIME [Concomitant]
     Dosage: 4 GRAM
     Route: 041
     Dates: start: 20120318, end: 20120318
  12. ANTIBIOTICS [Concomitant]
     Indication: ANTIBIOTIC PROPHYLAXIS
     Route: 065
  13. CEFEPIME [Concomitant]
     Indication: RESPIRATORY TRACT INFECTION VIRAL
     Dosage: 1 GRAM
     Route: 041
     Dates: start: 20120317, end: 20120317
  14. ACTRAPID [Concomitant]
     Dosage: 6 IU (INTERNATIONAL UNIT)
     Route: 041
     Dates: start: 20120327, end: 20120327
  15. CARFILZOMIB [Suspect]
     Indication: MULTIPLE MYELOMA
     Route: 065
  16. ANTIVIRALS [Concomitant]
     Indication: ANTIVIRAL PROPHYLAXIS
     Route: 065
  17. DIABETON [Concomitant]
     Indication: TYPE 2 DIABETES MELLITUS
     Dosage: 30 MILLIGRAM
     Route: 048
     Dates: start: 20111102
  18. ACYCLOVIR [Concomitant]
     Indication: RESPIRATORY TRACT INFECTION VIRAL
     Dosage: 200 MILLIGRAM
     Route: 048
     Dates: start: 20120315, end: 20120317

REACTIONS (2)
  - VASCULITIS [None]
  - PLATELET DISORDER [None]
